FAERS Safety Report 13986101 (Version 1)
Quarter: 2017Q3

REPORT INFORMATION
  Report Type: Spontaneous
  Country: AU (occurrence: AU)
  Receive Date: 20170919
  Receipt Date: 20170919
  Transmission Date: 20171128
  Serious: Yes (Life-Threatening, Other)
  Sender: FDA-Public Use
  Company Number: AU-NAPPMUNDI-USA-2017-0140807

PATIENT
  Age: 51 Year
  Sex: Male

DRUGS (2)
  1. TARGINIQ ER [Suspect]
     Active Substance: NALOXONE HYDROCHLORIDE\OXYCODONE HYDROCHLORIDE
     Indication: ANALGESIC THERAPY
     Route: 048
  2. METHADONE [Interacting]
     Active Substance: METHADONE HYDROCHLORIDE
     Indication: ANALGESIC THERAPY
     Route: 048

REACTIONS (3)
  - Overdose [Unknown]
  - Drug interaction [Unknown]
  - Stupor [Unknown]
